FAERS Safety Report 11923846 (Version 2)
Quarter: 2016Q1

REPORT INFORMATION
  Report Type: Spontaneous
  Country: RU (occurrence: RU)
  Receive Date: 20160118
  Receipt Date: 20160125
  Transmission Date: 20160526
  Serious: Yes (Other)
  Sender: FDA-Public Use
  Company Number: RU-IPSEN BIOPHARMACEUTICALS, INC.-2015-09472

PATIENT
  Age: 31 Year
  Sex: Female

DRUGS (1)
  1. DYSPORT 500 UNITES SPEYWOOD [Suspect]
     Active Substance: ABOBOTULINUMTOXINA
     Indication: SKIN WRINKLING
     Dosage: 25 UNITS
     Route: 030
     Dates: start: 20151127, end: 20151127

REACTIONS (9)
  - Angioedema [Not Recovered/Not Resolved]
  - Stress [Unknown]
  - Weight decreased [Unknown]
  - Product quality issue [Unknown]
  - Neuromuscular toxicity [Unknown]
  - Sensation of foreign body [Unknown]
  - Dysphagia [Unknown]
  - Fear of death [Unknown]
  - Dyspnoea [Unknown]

NARRATIVE: CASE EVENT DATE: 2015
